FAERS Safety Report 4303752-4 (Version None)
Quarter: 2004Q1

REPORT INFORMATION
  Report Type: 
  Country: None (occurrence: None)
  Receive Date: 20040223
  Receipt Date: 20031203
  Transmission Date: 20041129
  Serious: Yes (Other)
  Sender: FDA-Public Use
  Company Number: USA-2003-0011490

PATIENT
  Age: 36 Year

DRUGS (1)
  1. CEFDITOREN PIVOXIL(SIMILAR TO NDA 21-222) (CEFDITOREN PIVOXIL) UNKNOWN [Suspect]
     Indication: NASOPHARYNGITIS

REACTIONS (1)
  - ENTEROCOLITIS HAEMORRHAGIC [None]
